FAERS Safety Report 7499155-4 (Version None)
Quarter: 2011Q2

REPORT INFORMATION
  Report Type: 
  Country: None (occurrence: None)
  Receive Date: 20110516
  Receipt Date: 20110502
  Transmission Date: 20111010
  Serious: Yes (Death)
  Sender: FDA-Public Use
  Company Number: 031429

PATIENT
  Sex: Male
  Weight: 78.7 kg

DRUGS (6)
  1. CETAPHIL /01414401/ [Concomitant]
  2. CERTOLIZUMAB PEGOL [Suspect]
     Indication: PSORIATIC ARTHROPATHY
     Dosage: (400 MG 1X/2 WEEKS, AT WEEK 0, 2 AND 4 SUBCUTSNROUS), (200 MG 1X/2 WEEKS, SINCE WEEK 6 SUBCUTANEOUS)
     Route: 058
     Dates: end: 20110410
  3. FOLIC ACID [Concomitant]
  4. CELEBREX [Concomitant]
  5. METHOTREXATE [Concomitant]
  6. ASPIRIN [Concomitant]

REACTIONS (3)
  - BLOOD CHOLESTEROL INCREASED [None]
  - CARDIAC ARREST [None]
  - LABORATORY TEST ABNORMAL [None]
